FAERS Safety Report 19745159 (Version 3)
Quarter: 2022Q2

REPORT INFORMATION
  Report Type: Report from Study
  Country: JP (occurrence: JP)
  Receive Date: 20210825
  Receipt Date: 20220403
  Transmission Date: 20220721
  Serious: Yes (Death)
  Sender: FDA-Public Use
  Company Number: JP-ABBVIE-21K-087-4053892-00

PATIENT
  Age: 54 Year
  Sex: Female
  Weight: 41.9 kg

DRUGS (13)
  1. RINVOQ [Suspect]
     Active Substance: UPADACITINIB
     Indication: Rheumatoid arthritis
     Route: 048
     Dates: start: 20210218, end: 20210303
  2. RINVOQ [Suspect]
     Active Substance: UPADACITINIB
     Route: 048
     Dates: start: 20210422, end: 20210709
  3. LOXOPROFEN SODIUM DIHYDRATE [Concomitant]
     Active Substance: LOXOPROFEN SODIUM DIHYDRATE
     Indication: Rheumatoid arthritis
  4. PREDNISOLONE [Concomitant]
     Active Substance: PREDNISOLONE
     Indication: Rheumatoid arthritis
  5. PREDNISOLONE [Concomitant]
     Active Substance: PREDNISOLONE
     Indication: Rheumatoid arthritis
     Dates: end: 20200302
  6. FLURBIPROFEN [Concomitant]
     Active Substance: FLURBIPROFEN
     Indication: Rheumatoid arthritis
     Dates: start: 20200302
  7. BARICITINIB [Concomitant]
     Active Substance: BARICITINIB
     Indication: Rheumatoid arthritis
     Dates: start: 20210304, end: 20210421
  8. LIMAPROST [Concomitant]
     Active Substance: LIMAPROST
     Indication: Product used for unknown indication
     Route: 048
  9. REBAMIPIDE [Concomitant]
     Active Substance: REBAMIPIDE
     Indication: Product used for unknown indication
     Route: 048
  10. RUPATADINE FUMARATE [Concomitant]
     Active Substance: RUPATADINE FUMARATE
     Indication: Product used for unknown indication
     Route: 048
  11. KAKKONTO EXTRACT [Concomitant]
     Indication: Product used for unknown indication
     Route: 048
     Dates: end: 20210303
  12. LOXOPROFEN SODIUM DIHYDRATE [Concomitant]
     Active Substance: LOXOPROFEN SODIUM DIHYDRATE
     Indication: Rheumatoid arthritis
     Dates: end: 20200302
  13. TIZANIDINE HYDROCHLORIDE [Concomitant]
     Active Substance: TIZANIDINE HYDROCHLORIDE
     Indication: Product used for unknown indication
     Route: 048
     Dates: start: 20210616, end: 20210630

REACTIONS (1)
  - Death [Fatal]

NARRATIVE: CASE EVENT DATE: 20210710
